FAERS Safety Report 8973895 (Version 2)
Quarter: 2013Q1

REPORT INFORMATION
  Report Type: Spontaneous
  Country: US (occurrence: US)
  Receive Date: 20121218
  Receipt Date: 20130131
  Transmission Date: 20140127
  Serious: Yes (Hospitalization)
  Sender: FDA-Public Use
  Company Number: US-GLAXOSMITHKLINE-A1005764A

PATIENT
  Age: 58 Year
  Sex: Male
  Weight: 95 kg

DRUGS (7)
  1. VOTRIENT [Suspect]
     Indication: SARCOMA
     Dosage: 800MG PER DAY
     Route: 048
     Dates: start: 20121019, end: 20121203
  2. FOSINOPRIL [Concomitant]
     Route: 048
  3. HYDROCHLOROTHIAZIDE [Concomitant]
     Dosage: 12.5MG PER DAY
  4. DOXORUBICIN [Concomitant]
     Dosage: 75MGM2 CYCLIC
     Dates: start: 20120517, end: 20120816
  5. BISOPROLOL [Concomitant]
     Route: 048
  6. DOCUSATE [Concomitant]
     Dosage: 100MG TWICE PER DAY
     Route: 048
  7. MOUTHWASH [Concomitant]
     Dosage: 300ML THREE TIMES PER DAY

REACTIONS (17)
  - Liver injury [Recovering/Resolving]
  - Hepatotoxicity [Recovering/Resolving]
  - Blood bilirubin increased [Recovering/Resolving]
  - Hepatic enzyme increased [Recovering/Resolving]
  - Nausea [Recovering/Resolving]
  - Jaundice [Recovering/Resolving]
  - Asthenia [Recovering/Resolving]
  - Hepatitis [Recovering/Resolving]
  - Thrombocytopenia [Unknown]
  - Gallbladder disorder [Unknown]
  - Lower extremity mass [Unknown]
  - Hypotension [Unknown]
  - Coagulopathy [Unknown]
  - Oedema peripheral [Recovering/Resolving]
  - Alopecia [Recovering/Resolving]
  - Rhinorrhoea [Unknown]
  - Mucosal inflammation [Recovered/Resolved]
